FAERS Safety Report 6308793-3 (Version None)
Quarter: 2009Q3

REPORT INFORMATION
  Report Type: 
  Country: None (occurrence: None)
  Receive Date: 20090813
  Receipt Date: 20080701
  Transmission Date: 20100115
  Serious: No
  Sender: FDA-Public Use
  Company Number: US-ALLERGAN-0808017US

PATIENT
  Age: 78 Year
  Sex: Female

DRUGS (6)
  1. COMBIGAN [Suspect]
     Indication: GLAUCOMA
     Dosage: UNK, UNKNOWN
     Route: 047
     Dates: start: 20080401, end: 20080528
  2. COMBIGAN [Suspect]
     Dosage: UNK, UNKNOWN
     Route: 047
     Dates: start: 20080627, end: 20080630
  3. LUMIGAN [Suspect]
     Indication: GLAUCOMA
     Dosage: UNK, UNKNOWN
     Route: 047
  4. LORAZEPAM [Concomitant]
  5. LISINOPRIL [Concomitant]
  6. TRAVATAN Z [Concomitant]

REACTIONS (1)
  - ERYTHEMA [None]
